FAERS Safety Report 11061597 (Version 2)
Quarter: 2015Q2

REPORT INFORMATION
  Report Type: Spontaneous
  Country: US (occurrence: None)
  Receive Date: 20150422
  Receipt Date: 20150430
  Transmission Date: 20150821
  Serious: Yes (Hospitalization)
  Sender: FDA-Public Use
  Company Number: 2015SGN00547

PATIENT
  Age: 73 Year
  Sex: Female

DRUGS (16)
  1. BRENTUXIMAB VEDOTIN (BRENTUXIMAB VEDOTIN) INJECTION [Suspect]
     Active Substance: BRENTUXIMAB VEDOTIN
     Indication: HODGKIN^S DISEASE
     Dosage: 1.8 MG/KG, QCYCLE, INTRAVENOUS?
     Route: 042
     Dates: start: 20150317, end: 20150317
  2. PREDNISONE. [Concomitant]
     Active Substance: PREDNISONE
  3. TRAMADOL [Concomitant]
     Active Substance: TRAMADOL
  4. BUPROPION HCL ER (BUPROPION HYDROCHLORIDE) [Concomitant]
  5. POTASSIUM CHLORIDE. [Concomitant]
     Active Substance: POTASSIUM CHLORIDE
  6. ONDANSETRON. [Concomitant]
     Active Substance: ONDANSETRON
  7. ALLOPURINOL. [Concomitant]
     Active Substance: ALLOPURINOL
  8. ASACOL [Concomitant]
     Active Substance: MESALAMINE
  9. ACYCLOVIR /00587301/ (ACICLOVIR) [Concomitant]
     Active Substance: ACYCLOVIR
  10. OMEPRAZOLE. [Concomitant]
     Active Substance: OMEPRAZOLE
  11. COMPAZINE /000013302/ (PROCHLORPERAZINE EDISYLATE) [Concomitant]
  12. RETASIS (CICLOSPORIN) [Concomitant]
  13. SULINDAC. [Concomitant]
     Active Substance: SULINDAC
  14. VITAMIN D /00107901/ (ERGOCALCIFEROL) [Concomitant]
  15. AMBIEN [Concomitant]
     Active Substance: ZOLPIDEM TARTRATE
  16. PRAMIPEXOLE [Concomitant]
     Active Substance: PRAMIPEXOLE

REACTIONS (9)
  - Fall [None]
  - Decreased vibratory sense [None]
  - Peripheral sensory neuropathy [None]
  - Asthenia [None]
  - Loss of proprioception [None]
  - Gait disturbance [None]
  - Muscle atrophy [None]
  - Intervertebral disc degeneration [None]
  - Cervical spinal stenosis [None]

NARRATIVE: CASE EVENT DATE: 20150406
